FAERS Safety Report 9265480 (Version 6)
Quarter: 2015Q1

REPORT INFORMATION
  Report Type: Spontaneous
  Country: US (occurrence: US)
  Receive Date: 20130501
  Receipt Date: 20150212
  Transmission Date: 20150721
  Serious: Yes (Hospitalization, Other)
  Sender: FDA-Public Use
  Company Number: US-009507513-1304USA016990

PATIENT
  Sex: Male
  Weight: 92.63 kg

DRUGS (1)
  1. PROPECIA [Suspect]
     Active Substance: FINASTERIDE
     Indication: ALOPECIA
     Dosage: 1 MG, QD
     Route: 048
     Dates: start: 20040229, end: 201105

REACTIONS (20)
  - Prostate cancer [Unknown]
  - Essential hypertension [Unknown]
  - Nocturia [Unknown]
  - Erectile dysfunction [Unknown]
  - Foreign body reaction [Unknown]
  - Prostate ablation [Unknown]
  - Lower urinary tract symptoms [Not Recovered/Not Resolved]
  - Libido decreased [Unknown]
  - Organic erectile dysfunction [Unknown]
  - Sacroiliitis [Unknown]
  - Prostatic specific antigen increased [Not Recovered/Not Resolved]
  - Constipation [Unknown]
  - Adverse drug reaction [Unknown]
  - Penile size reduced [Unknown]
  - Sexual dysfunction [Not Recovered/Not Resolved]
  - Back pain [Unknown]
  - Prostatomegaly [Not Recovered/Not Resolved]
  - Inflammation [Unknown]
  - Benign prostatic hyperplasia [Not Recovered/Not Resolved]
  - Renal cyst [Unknown]

NARRATIVE: CASE EVENT DATE: 2010
